FAERS Safety Report 11031048 (Version 1)
Quarter: 2015Q2

REPORT INFORMATION
  Report Type: Spontaneous
  Country: US (occurrence: US)
  Receive Date: 20150415
  Receipt Date: 20150415
  Transmission Date: 20150821
  Serious: No
  Sender: FDA-Public Use
  Company Number: US-ASTRAZENECA-2015SE15985

PATIENT
  Sex: Female

DRUGS (1)
  1. PRILOSEC OTC [Suspect]
     Active Substance: OMEPRAZOLE MAGNESIUM
     Indication: DYSPEPSIA
     Route: 048
     Dates: start: 20150118, end: 20150201

REACTIONS (6)
  - Drug ineffective [Unknown]
  - Intentional overdose [Unknown]
  - Medication residue present [Unknown]
  - Inappropriate schedule of drug administration [Unknown]
  - Extra dose administered [Unknown]
  - Dyspepsia [Unknown]
